FAERS Safety Report 5047051-4 (Version None)
Quarter: 2006Q3

REPORT INFORMATION
  Report Type: 
  Country: None (occurrence: None)
  Receive Date: 20060710
  Receipt Date: 20060405
  Transmission Date: 20061208
  Serious: Yes (Other)
  Sender: FDA-Public Use
  Company Number: US-ROCHE-443574

PATIENT
  Age: 20 Year
  Sex: Female
  Weight: 72.6 kg

DRUGS (1)
  1. ACCUTANE [Suspect]
     Indication: ACNE
     Route: 048
     Dates: start: 19950515, end: 19950717

REACTIONS (32)
  - ALANINE AMINOTRANSFERASE INCREASED [None]
  - ANGER [None]
  - ANXIETY [None]
  - ARTHRALGIA [None]
  - BACK PAIN [None]
  - COLITIS [None]
  - COLITIS ULCERATIVE [None]
  - CONSTIPATION [None]
  - CROHN'S DISEASE [None]
  - CUSHINGOID [None]
  - DERMATITIS [None]
  - DYSGEUSIA [None]
  - DYSPAREUNIA [None]
  - DYSPHORIA [None]
  - ECONOMIC PROBLEM [None]
  - ERYTHEMA [None]
  - FATIGUE [None]
  - FUNGUS STOOL IDENTIFIED [None]
  - HAEMORRHOIDS [None]
  - HEADACHE [None]
  - INFLAMMATORY BOWEL DISEASE [None]
  - IRRITABILITY [None]
  - NECK INJURY [None]
  - POLYTRAUMATISM [None]
  - PROCTITIS ULCERATIVE [None]
  - PYREXIA [None]
  - RASH [None]
  - RECTAL HAEMORRHAGE [None]
  - SWELLING [None]
  - TONGUE DISCOLOURATION [None]
  - TREMOR [None]
  - WEIGHT INCREASED [None]
